FAERS Safety Report 6961019-X (Version None)
Quarter: 2010Q3

REPORT INFORMATION
  Report Type: 
  Country: None (occurrence: None)
  Receive Date: 20100901
  Receipt Date: 20100824
  Transmission Date: 20110219
  Serious: Yes (Disabling)
  Sender: FDA-Public Use
  Company Number: US-MERCK-1008USA00886

PATIENT
  Age: 6 Year

DRUGS (1)
  1. SINGULAIR [Suspect]
     Route: 048
     Dates: start: 20100501

REACTIONS (2)
  - DEPRESSION [None]
  - MALAISE [None]
